FAERS Safety Report 9010159 (Version 1)
Quarter: 2013Q1

REPORT INFORMATION
  Report Type: Spontaneous
  Country: MX (occurrence: MX)
  Receive Date: 20130110
  Receipt Date: 20130110
  Transmission Date: 20140127
  Serious: Yes (Other)
  Sender: FDA-Public Use
  Company Number: PHHY2013MX002020

PATIENT
  Sex: Female

DRUGS (4)
  1. FORADIL [Suspect]
     Indication: CHRONIC OBSTRUCTIVE PULMONARY DISEASE
     Dosage: 2 DF, DAILY
     Route: 048
     Dates: start: 20101109
  2. MIFLONIDE [Suspect]
     Dosage: UNK UKN, UNK
  3. ESOMEPRAZOLE [Concomitant]
     Dosage: 1 DF, DAILY
  4. SALBUTAMOL [Concomitant]
     Dosage: 2 DF, DAILY

REACTIONS (2)
  - Cyanosis [Not Recovered/Not Resolved]
  - Dyspnoea [Not Recovered/Not Resolved]
